FAERS Safety Report 18840177 (Version 1)
Quarter: 2021Q1

REPORT INFORMATION
  Report Type: Spontaneous
  Country: CN (occurrence: CN)
  Receive Date: 20210204
  Receipt Date: 20210204
  Transmission Date: 20210419
  Serious: Yes (Disabling)
  Sender: FDA-Public Use
  Company Number: CN-AMGEN-CHNSP2021017313

PATIENT
  Age: 44 Year
  Sex: Female

DRUGS (3)
  1. GRAN [Suspect]
     Active Substance: FILGRASTIM
     Indication: ALPHA INTERFERON THERAPY
     Dosage: 300 MICROGRAM, QD
     Route: 058
     Dates: start: 20210120, end: 20210126
  2. SODIUM CHLORIDE IV [Concomitant]
     Active Substance: SODIUM CHLORIDE
     Indication: PRODUCT USED FOR UNKNOWN INDICATION
     Dosage: 250 MILLILITER
     Route: 041
     Dates: start: 20210118, end: 20210118
  3. DOCETAXEL. [Suspect]
     Active Substance: DOCETAXEL
     Indication: BREAST CANCER
     Dosage: 120 MILLIGRAM, QD
     Route: 041
     Dates: start: 20210118, end: 20210118

REACTIONS (3)
  - Rash [Recovering/Resolving]
  - Pruritus [Recovering/Resolving]
  - Pyrexia [Recovering/Resolving]

NARRATIVE: CASE EVENT DATE: 20210124
